FAERS Safety Report 14750223 (Version 3)
Quarter: 2018Q3

REPORT INFORMATION
  Report Type: Spontaneous
  Country: FR (occurrence: FR)
  Receive Date: 20180412
  Receipt Date: 20180802
  Transmission Date: 20181010
  Serious: Yes (Other)
  Sender: FDA-Public Use
  Company Number: FR-ASTRAZENECA-2018SE44765

PATIENT
  Sex: Male
  Weight: 103 kg

DRUGS (6)
  1. QUETIAPINE. [Suspect]
     Active Substance: QUETIAPINE
     Indication: BIPOLAR DISORDER
     Dosage: 4 TABLETS SR (1200 MG PER DAY)
     Route: 065
     Dates: start: 201710, end: 201803
  2. QUETIAPINE. [Suspect]
     Active Substance: QUETIAPINE
     Indication: SCHIZOPHRENIA
     Dosage: 4 TABLETS SR (1200 MG PER DAY)
     Route: 065
     Dates: start: 201710, end: 201803
  3. DEPAMIDE [Concomitant]
     Active Substance: VALPROMIDE
  4. THERALENE [Concomitant]
     Active Substance: TRIMEPRAZINE
  5. VALIUM [Concomitant]
     Active Substance: DIAZEPAM
  6. MIRTAZAPINE. [Concomitant]
     Active Substance: MIRTAZAPINE

REACTIONS (8)
  - Feeling abnormal [Not Recovered/Not Resolved]
  - Peripheral swelling [Not Recovered/Not Resolved]
  - Breast mass [Recovered/Resolved]
  - Galactorrhoea [Recovered/Resolved]
  - Breast pain [Recovered/Resolved]
  - Arthralgia [Not Recovered/Not Resolved]
  - Off label use [Recovered/Resolved]
  - Weight increased [Not Recovered/Not Resolved]
